FAERS Safety Report 7672458-6 (Version None)
Quarter: 2011Q3

REPORT INFORMATION
  Report Type: 
  Country: None (occurrence: None)
  Receive Date: 20110809
  Receipt Date: 20110801
  Transmission Date: 20111222
  Serious: Yes (Death)
  Sender: FDA-Public Use
  Company Number: GB-GENZYME-CLOF-1001618

PATIENT
  Sex: Female

DRUGS (19)
  1. EVOLTRA [Suspect]
     Dosage: 2ND COURSE
     Route: 065
     Dates: start: 20110217, end: 20110401
  2. IDARUBICIN HCL [Suspect]
     Indication: ACUTE MYELOID LEUKAEMIA
     Dosage: UNK AS PART OF FLAG-IDA
     Route: 065
  3. MYLOTARG [Suspect]
     Indication: ACUTE MYELOID LEUKAEMIA
     Dosage: UNK AS PART OF ADE
     Route: 065
  4. CYTARABINE [Suspect]
     Indication: ACUTE MYELOID LEUKAEMIA
     Dosage: UNK PART OF ADE
     Route: 065
  5. NORTETHISTERONE [Concomitant]
     Indication: PRODUCT USED FOR UNKNOWN INDICATION
     Dosage: 5 MG, TDS
  6. AMLODIPINE [Concomitant]
     Indication: PRODUCT USED FOR UNKNOWN INDICATION
     Dosage: 10 MG OM
  7. PERINDOPRIL [Concomitant]
     Indication: PRODUCT USED FOR UNKNOWN INDICATION
     Dosage: 4 MG OM
  8. DAUNORUBICIN HCL [Suspect]
     Indication: ACUTE MYELOID LEUKAEMIA
     Dosage: 1ST COURSE
     Route: 065
     Dates: start: 20110217, end: 20110401
  9. ACYCLOVIR [Concomitant]
     Indication: PRODUCT USED FOR UNKNOWN INDICATION
     Dosage: 400 MG, QDX5
  10. FLUDARA [Suspect]
     Indication: ACUTE MYELOID LEUKAEMIA
     Dosage: UNK AS PART OF FLAG-IDA
     Route: 065
  11. CYTARABINE [Suspect]
     Indication: ACUTE MYELOID LEUKAEMIA
     Dosage: UNK AS PART OF FLAG-IDA
     Route: 065
  12. DIFFLAM MOUTH [Concomitant]
     Indication: PRODUCT USED FOR UNKNOWN INDICATION
     Dosage: 10 MG, QDS
     Route: 048
  13. EVOLTRA [Suspect]
     Indication: ACUTE MYELOID LEUKAEMIA
     Dosage: 1ST COURSE
     Route: 065
     Dates: start: 20110217, end: 20110401
  14. ETOPOSIDE [Suspect]
     Indication: ACUTE MYELOID LEUKAEMIA
     Dosage: UNK AS PART OF ADE
     Route: 065
  15. ADCAL-D3 [Concomitant]
     Indication: PRODUCT USED FOR UNKNOWN INDICATION
     Dosage: 2 TABLETS OM
     Route: 048
  16. NEUPOGEN [Suspect]
     Indication: ACUTE MYELOID LEUKAEMIA
     Dosage: UNK AS PART OF FLAG-IDA
     Route: 065
  17. DAUNORUBICIN HCL [Suspect]
     Dosage: 2ND COURSE
     Route: 065
     Dates: start: 20110217, end: 20110401
  18. CHLORHEXIDINE [Concomitant]
     Indication: PRODUCT USED FOR UNKNOWN INDICATION
     Dosage: 10 ML QDS
     Route: 048
  19. FLUCONAZOLE [Concomitant]
     Indication: PRODUCT USED FOR UNKNOWN INDICATION
     Dosage: 100 MG OM

REACTIONS (1)
  - ACUTE MYELOID LEUKAEMIA RECURRENT [None]
